FAERS Safety Report 10917897 (Version 1)
Quarter: 2015Q1

REPORT INFORMATION
  Report Type: Spontaneous
  Country: GR (occurrence: None)
  Receive Date: 20150311
  Receipt Date: 20150311
  Transmission Date: 20150721
  Serious: Yes (Death)
  Sender: FDA-Public Use
  Company Number: FK201501137

PATIENT
  Age: 50 Year
  Sex: Male
  Weight: 120 kg

DRUGS (2)
  1. PROPOFOL 1% FRESENIUS (PROPOFOL) (PROPOFOL) [Suspect]
     Active Substance: PROPOFOL
     Indication: HEAD INJURY
     Dosage: 1 IN 1 HR, (NOT OTHERWISE SPECIFIED)
     Route: 042
     Dates: start: 20150214, end: 20150224
  2. THIOPENTAL (THIOPENTAL) [Concomitant]

REACTIONS (1)
  - Propofol infusion syndrome [None]

NARRATIVE: CASE EVENT DATE: 20150221
